FAERS Safety Report 23337565 (Version 2)
Quarter: 2024Q1

REPORT INFORMATION
  Report Type: Spontaneous
  Country: US (occurrence: US)
  Receive Date: 20231226
  Receipt Date: 20240308
  Transmission Date: 20240410
  Serious: Yes (Other)
  Sender: FDA-Public Use
  Company Number: US-TEVA-VS-3137520

PATIENT
  Age: 44 Year
  Sex: Female

DRUGS (1)
  1. TESTOSTERONE [Suspect]
     Active Substance: TESTOSTERONE
     Indication: Product used for unknown indication
     Dosage: PATIENT EXPERIENCED UNINTENTIONAL EXPOSURE TO TESTOSTERONE FROM HER HUSBAND
     Route: 061

REACTIONS (6)
  - Amenorrhoea [Unknown]
  - Accidental exposure to product [Unknown]
  - Dysphonia [Unknown]
  - Blood testosterone increased [Unknown]
  - Exposure via partner [Unknown]
  - Hirsutism [Unknown]
